FAERS Safety Report 12353155 (Version 1)
Quarter: 2016Q2

REPORT INFORMATION
  Report Type: Spontaneous
  Country: PT (occurrence: PT)
  Receive Date: 20160510
  Receipt Date: 20160510
  Transmission Date: 20160815
  Serious: Yes (Disabling)
  Sender: FDA-Public Use
  Company Number: PT-ASTRAZENECA-2016SE45301

PATIENT
  Age: 278 Month
  Sex: Male
  Weight: 73 kg

DRUGS (4)
  1. SEROQUEL [Suspect]
     Active Substance: QUETIAPINE FUMARATE
     Indication: INSOMNIA
     Route: 048
  2. SEROQUEL [Suspect]
     Active Substance: QUETIAPINE FUMARATE
     Indication: INSOMNIA
     Route: 048
     Dates: start: 200608
  3. LAMICTAL [Concomitant]
     Active Substance: LAMOTRIGINE
     Indication: PRODUCT USED FOR UNKNOWN INDICATION
  4. MELATONIN [Concomitant]
     Active Substance: MELATONIN
     Indication: DELAYED SLEEP PHASE
     Route: 048

REACTIONS (6)
  - Intentional product use issue [Unknown]
  - Somnolence [Unknown]
  - Drug ineffective for unapproved indication [Unknown]
  - Intentional product misuse [Unknown]
  - Intentional product use issue [Unknown]
  - Product quality issue [Unknown]

NARRATIVE: CASE EVENT DATE: 200608
